FAERS Safety Report 12122218 (Version 1)
Quarter: 2016Q1

REPORT INFORMATION
  Report Type: Spontaneous
  Country: IT (occurrence: IT)
  Receive Date: 20160226
  Receipt Date: 20160226
  Transmission Date: 20160526
  Serious: Yes (Other)
  Sender: FDA-Public Use
  Company Number: IT-TEVA-636706ACC

PATIENT
  Age: 75 Year
  Sex: Male
  Weight: 82 kg

DRUGS (1)
  1. OLANZAPINA TEVA - TEVA B.V. [Suspect]
     Active Substance: OLANZAPINE
     Indication: PSYCHOTIC DISORDER
     Dosage: 5 MG DAILY
     Route: 048
     Dates: start: 20150703, end: 20150826

REACTIONS (1)
  - Dysentery [Recovered/Resolved]

NARRATIVE: CASE EVENT DATE: 20150820
